FAERS Safety Report 8995899 (Version 1)
Quarter: 2013Q1

REPORT INFORMATION
  Report Type: Spontaneous
  Country: US (occurrence: US)
  Receive Date: 20130103
  Receipt Date: 20130103
  Transmission Date: 20140127
  Serious: No
  Sender: FDA-Public Use
  Company Number: US-BAYER-2013-000989

PATIENT
  Age: 52 Year
  Sex: Female

DRUGS (4)
  1. BETASERON [Suspect]
     Dosage: 0.25 MG, QOD
     Route: 058
  2. CITALOPRAM [Concomitant]
     Dosage: 40 MG, UNK
  3. ONE DAILY [VIT C,B12,D2,B9,B3,B6,RETINOL,B2,B1 HCL,VIT E] [Concomitant]
  4. BACLOFEN [Concomitant]
     Dosage: 10 MG, UNK

REACTIONS (1)
  - Diarrhoea [Unknown]
